FAERS Safety Report 19137852 (Version 1)
Quarter: 2021Q2

REPORT INFORMATION
  Report Type: Spontaneous
  Country: FR (occurrence: FR)
  Receive Date: 20210414
  Receipt Date: 20210414
  Transmission Date: 20210717
  Serious: Yes (Hospitalization, Other)
  Sender: FDA-Public Use
  Company Number: FR-ASSERTIO THERAPEUTICS, INC.-FR-2021AST000046

PATIENT
  Age: 33 Year
  Sex: Female

DRUGS (1)
  1. DICLOFENAC POTASSIUM. [Suspect]
     Active Substance: DICLOFENAC POTASSIUM
     Indication: BACK PAIN
     Dosage: 75 MG, UNK
     Route: 030

REACTIONS (2)
  - Muscle necrosis [Unknown]
  - Clostridial infection [Unknown]
